FAERS Safety Report 4502680-9 (Version None)
Quarter: 2004Q4

REPORT INFORMATION
  Report Type: 
  Country: None (occurrence: None)
  Receive Date: 20041110
  Receipt Date: 20041025
  Transmission Date: 20050328
  Serious: No
  Sender: FDA-Public Use
  Company Number: A02200403184

PATIENT

DRUGS (1)
  1. ELOXATINE - (OXALIPLATIN) - SOLUTION - 5 MG/ML [Suspect]
     Indication: COLORECTAL CANCER
     Dosage: INTRAVENOUS NOS
     Route: 042

REACTIONS (1)
  - VENOOCCLUSIVE LIVER DISEASE [None]
